FAERS Safety Report 14813636 (Version 1)
Quarter: 2018Q2

REPORT INFORMATION
  Report Type: Spontaneous
  Country: FR (occurrence: FR)
  Receive Date: 20180426
  Receipt Date: 20180426
  Transmission Date: 20180711
  Serious: Yes (Other)
  Sender: FDA-Public Use
  Company Number: FR-MERCK KGAA-2046566

PATIENT
  Age: 43 Year
  Sex: Male

DRUGS (2)
  1. NOVOTHYROX [Suspect]
     Active Substance: LEVOTHYROXINE SODIUM
     Indication: POST PROCEDURAL HYPOTHYROIDISM
  2. NOVOTHYROX [Suspect]
     Active Substance: LEVOTHYROXINE SODIUM
     Route: 048
     Dates: end: 201711

REACTIONS (10)
  - Stress [None]
  - Anger [None]
  - Reflexes abnormal [None]
  - Hypothyroidism [None]
  - Sleep disorder [None]
  - Sense of oppression [None]
  - Negative thoughts [None]
  - Emotional distress [None]
  - Impatience [None]
  - Ankle fracture [None]

NARRATIVE: CASE EVENT DATE: 20170917
